FAERS Safety Report 8601287-1 (Version None)
Quarter: 2012Q3

REPORT INFORMATION
  Report Type: 
  Country: None (occurrence: None)
  Receive Date: 20120817
  Receipt Date: 20120810
  Transmission Date: 20120928
  Serious: Yes (Death, Hospitalization)
  Sender: FDA-Public Use
  Company Number: US-SANOFI-AVENTIS-2012SA057157

PATIENT
  Age: 77 Year
  Sex: Male
  Weight: 81.18 kg

DRUGS (9)
  1. INVESTIGATIONAL DRUG [Suspect]
     Route: 042
     Dates: start: 20081023
  2. DOCETAXEL [Suspect]
     Route: 041
     Dates: start: 20081023, end: 20081023
  3. DOCETAXEL [Suspect]
     Route: 041
     Dates: start: 20081113, end: 20081113
  4. TINZAPARIN SODIUM [Concomitant]
     Dates: start: 20080917
  5. CEROVITE [Concomitant]
     Dates: start: 20080909
  6. APREPITANT [Concomitant]
  7. PRILOSEC [Concomitant]
     Dates: start: 20081029
  8. INVESTIGATIONAL DRUG [Suspect]
     Dosage: CHRONIC DOSE OF 1503MG
     Route: 042
     Dates: end: 20081130
  9. VITAMIN B-12 [Concomitant]
     Dates: start: 20080207

REACTIONS (3)
  - FEBRILE NEUTROPENIA [None]
  - RESPIRATORY FAILURE [None]
  - RENAL FAILURE [None]
